FAERS Safety Report 8542273-X (Version None)
Quarter: 2012Q3

REPORT INFORMATION
  Report Type: 
  Country: None (occurrence: None)
  Receive Date: 20120726
  Receipt Date: 20120720
  Transmission Date: 20120928
  Serious: Yes (Other)
  Sender: FDA-Public Use
  Company Number: US-PFIZER INC-2011140492

PATIENT
  Sex: Male
  Weight: 95.238 kg

DRUGS (7)
  1. VENLAFAXINE HCL [Suspect]
     Indication: IRRITABLE BOWEL SYNDROME
  2. VENLAFAXINE HCL [Suspect]
     Indication: ANXIETY
     Dosage: 37.5 MG, 1X/DAY
     Route: 048
     Dates: start: 20110601, end: 20110622
  3. MULTI-VITAMINS [Concomitant]
     Indication: SUPPLEMENTATION THERAPY
     Dosage: UNK
  4. EFFEXOR XR [Suspect]
     Indication: IRRITABLE BOWEL SYNDROME
     Dosage: 75 MG, 1X/DAY
     Dates: start: 20071201
  5. EFFEXOR XR [Suspect]
     Dosage: DAILY
     Route: 048
  6. EFFEXOR XR [Suspect]
     Indication: DEPRESSION
     Dosage: 37.5 MG, 1X/DAY
     Dates: start: 20080101
  7. EFFEXOR XR [Suspect]
     Indication: ANXIETY
     Dosage: 37.5 MG, 1X/DAY
     Route: 048
     Dates: start: 20030101

REACTIONS (9)
  - FATIGUE [None]
  - ABNORMAL DREAMS [None]
  - IRRITABLE BOWEL SYNDROME [None]
  - DRUG WITHDRAWAL SYNDROME [None]
  - HEADACHE [None]
  - DEPRESSION [None]
  - ANXIETY [None]
  - DIZZINESS [None]
  - DRUG INEFFECTIVE [None]
